FAERS Safety Report 9867323 (Version 1)
Quarter: 2014Q1

REPORT INFORMATION
  Report Type: Spontaneous
  Country: SE (occurrence: SE)
  Receive Date: 20140204
  Receipt Date: 20140204
  Transmission Date: 20141002
  Serious: Yes (Other)
  Sender: FDA-Public Use
  Company Number: SE-JNJFOC-20140118483

PATIENT
  Age: 72 Year
  Sex: Male

DRUGS (1)
  1. REMICADE [Suspect]
     Indication: PRODUCT USED FOR UNKNOWN INDICATION
     Route: 042
     Dates: start: 20060118, end: 20140116

REACTIONS (3)
  - Autoimmune disorder [Unknown]
  - Antiphospholipid antibodies positive [Not Recovered/Not Resolved]
  - Antinuclear antibody positive [Unknown]
